FAERS Safety Report 9574605 (Version 2)
Quarter: 2013Q4

REPORT INFORMATION
  Report Type: Spontaneous
  Country: US (occurrence: US)
  Receive Date: 20131001
  Receipt Date: 20131001
  Transmission Date: 20140711
  Serious: No
  Sender: FDA-Public Use
  Company Number: US-PURDUE-USA-2012-0083502

PATIENT
  Sex: Male
  Weight: 141.68 kg

DRUGS (3)
  1. BUTRANS [Suspect]
     Indication: PAIN
     Dosage: 20 MCG/HR, UNK
     Route: 062
  2. BUTRANS [Suspect]
     Indication: BACK PAIN
  3. LORTAB                             /00607101/ [Concomitant]
     Indication: BREAKTHROUGH PAIN
     Dosage: 5/500 BID PRN

REACTIONS (3)
  - Application site nodule [Unknown]
  - Rash [Recovered/Resolved]
  - Pruritus [Recovered/Resolved]
